FAERS Safety Report 14839509 (Version 3)
Quarter: 2018Q2

REPORT INFORMATION
  Report Type: Report from Study
  Country: None (occurrence: CO)
  Receive Date: 20180502
  Receipt Date: 20180531
  Transmission Date: 20180711
  Serious: Yes (Other)
  Sender: FDA-Public Use
  Company Number: CO-ABBVIE-18K-036-2342820-00

PATIENT
  Sex: Male
  Weight: 85 kg

DRUGS (1)
  1. HUMIRA [Suspect]
     Active Substance: ADALIMUMAB
     Indication: PSORIATIC ARTHROPATHY
     Route: 058
     Dates: start: 20091009, end: 20180402

REACTIONS (7)
  - Malaise [Unknown]
  - Ligament injury [Recovering/Resolving]
  - Influenza [Unknown]
  - Cough [Unknown]
  - Accident [Recovering/Resolving]
  - Headache [Unknown]
  - Odynophagia [Unknown]
